FAERS Safety Report 5907649-5 (Version None)
Quarter: 2008Q3

REPORT INFORMATION
  Report Type: 
  Country: None (occurrence: None)
  Receive Date: 20080929
  Receipt Date: 20080923
  Transmission Date: 20090109
  Serious: Yes (Life-Threatening, Hospitalization)
  Sender: FDA-Public Use
  Company Number: 2008-03537

PATIENT
  Age: 47 Year
  Sex: Female
  Weight: 68 kg

DRUGS (5)
  1. VELCADE [Suspect]
     Indication: B-CELL LYMPHOMA
     Dosage: 1.7 MG, INTRAVENOUS
     Route: 042
     Dates: start: 20080725
  2. CYCLOPHOSPHAMIDE [Suspect]
     Indication: B-CELL LYMPHOMA
     Dosage: 1300 MG, INTRAVENOUS
     Route: 042
     Dates: start: 20080627
  3. VINCRISTINE [Suspect]
     Indication: B-CELL LYMPHOMA
     Dosage: 2 MG, INTRAVENOUS
     Route: 042
     Dates: start: 20080627
  4. DOXORUBICIN HCL [Suspect]
     Indication: B-CELL LYMPHOMA
     Dosage: 84 MG, INTRAVENOUS
     Route: 042
     Dates: start: 20080627
  5. PREDNISOLONE TAB [Suspect]
     Indication: B-CELL LYMPHOMA
     Dosage: 100 MGM, INTRAVENOUS
     Route: 042
     Dates: start: 20080711

REACTIONS (2)
  - HERPES ZOSTER [None]
  - NEUTROPENIA [None]
